FAERS Safety Report 9059761 (Version 1)
Quarter: 2013Q1

REPORT INFORMATION
  Report Type: Spontaneous
  Country: US (occurrence: None)
  Receive Date: 20130206
  Receipt Date: 20130206
  Transmission Date: 20140127
  Serious: Yes (Hospitalization)
  Sender: FDA-Public Use
  Company Number: None

PATIENT
  Age: 89 Year
  Sex: Male
  Weight: 83.46 kg

DRUGS (1)
  1. ERTAPENEM [Suspect]
     Indication: CELLULITIS
     Dosage: 1 GRAM IN 100ML NS, Q 24HRS
     Route: 042
     Dates: start: 20130106, end: 20130116

REACTIONS (1)
  - Stevens-Johnson syndrome [None]
